FAERS Safety Report 13674074 (Version 4)
Quarter: 2018Q4

REPORT INFORMATION
  Report Type: Report from Study
  Country: CA (occurrence: CA)
  Receive Date: 20170621
  Receipt Date: 20181019
  Transmission Date: 20190204
  Serious: Yes (Death, Hospitalization, Other)
  Sender: FDA-Public Use
  Company Number: CA-OTSUKA-2017_013333

PATIENT
  Age: 77 Year
  Sex: Male
  Weight: 78 kg

DRUGS (25)
  1. METOLAZONE. [Concomitant]
     Active Substance: METOLAZONE
     Dosage: 5 MG, BID
     Route: 048
     Dates: start: 20170611, end: 20170612
  2. NIACIN. [Concomitant]
     Active Substance: NIACIN
     Indication: SUPPLEMENTATION THERAPY
     Dosage: 500 MG, BID
     Route: 048
     Dates: end: 20170615
  3. TOLVAPTAN [Suspect]
     Active Substance: TOLVAPTAN
     Indication: CARDIAC FAILURE ACUTE
     Dosage: 60 MG, QD
     Route: 048
     Dates: start: 20170606, end: 20170615
  4. LASIX [Concomitant]
     Active Substance: FUROSEMIDE
     Dosage: 80 MG, BID
     Route: 048
     Dates: start: 201706, end: 20170618
  5. METOLAZONE. [Concomitant]
     Active Substance: METOLAZONE
     Indication: CARDIAC FAILURE
     Dosage: 2.5 MG, BID
     Route: 048
     Dates: start: 20170613, end: 20170613
  6. GABAPENTIN. [Concomitant]
     Active Substance: GABAPENTIN
     Indication: NEUROPATHY PERIPHERAL
     Dosage: 300 MG, BID
     Route: 048
  7. AMIODARONE [Concomitant]
     Active Substance: AMIODARONE
     Dosage: 400 MG, TID
     Route: 048
     Dates: start: 20170602, end: 20170609
  8. TOLVAPTAN [Suspect]
     Active Substance: TOLVAPTAN
     Indication: HYPONATRAEMIA
     Dosage: 30 MG, UNK
     Route: 048
     Dates: start: 20170605
  9. LASIX [Concomitant]
     Active Substance: FUROSEMIDE
     Dosage: 40 MG, QD
     Route: 048
     Dates: start: 20170615
  10. CARVEDILOL. [Concomitant]
     Active Substance: CARVEDILOL
     Dosage: 37.5 MG, BID
     Route: 048
     Dates: start: 201706
  11. LASIX [Concomitant]
     Active Substance: FUROSEMIDE
     Indication: CARDIAC FAILURE
     Dosage: 40 MG, BID
     Route: 048
     Dates: start: 20170619, end: 20170621
  12. HYDRALAZINE [Concomitant]
     Active Substance: HYDRALAZINE HYDROCHLORIDE
     Indication: CARDIAC FAILURE
     Dosage: 10 MG, TID
     Route: 048
     Dates: start: 20170604
  13. DIGIFAB [Concomitant]
     Active Substance: OVINE DIGOXIN IMMUNE FAB
     Indication: TOXICITY TO VARIOUS AGENTS
     Dosage: 3 VIALS
     Route: 042
     Dates: start: 20170602, end: 20170602
  14. METOLAZONE. [Concomitant]
     Active Substance: METOLAZONE
     Dosage: 2.5 MG, BID
     Route: 048
     Dates: start: 20170610, end: 201806
  15. NITRO PATCH [Concomitant]
     Active Substance: NITROGLYCERIN
     Indication: CARDIAC FAILURE
     Dosage: 0.4 MG, Q1HR (NIGHT 3)
     Route: 062
  16. NITRO PATCH [Concomitant]
     Active Substance: NITROGLYCERIN
     Dosage: 1.2 MG, Q1HR
     Route: 062
  17. WARFARIN [Concomitant]
     Active Substance: WARFARIN
     Indication: ATRIAL FIBRILLATION
     Dosage: VARIABLE
     Route: 048
  18. CLOPIDOGREL [Concomitant]
     Active Substance: CLOPIDOGREL BISULFATE
     Indication: THROMBOSIS
     Dosage: 75 MG, QD
     Route: 048
     Dates: end: 20170604
  19. ACETAMINOPHEN. [Concomitant]
     Active Substance: ACETAMINOPHEN
     Indication: OSTEOARTHRITIS
     Dosage: 650 MG, QID
     Route: 048
  20. CARVEDILOL. [Concomitant]
     Active Substance: CARVEDILOL
     Indication: CARDIAC FAILURE
     Dosage: 25 MG, BID
     Route: 048
     Dates: end: 20170613
  21. ATORVASTATIN [Concomitant]
     Active Substance: ATORVASTATIN
     Indication: CORONARY ARTERY DISEASE
     Dosage: 80 MG, QHS
     Route: 048
  22. FERROMAX [Concomitant]
     Indication: SUPPLEMENTATION THERAPY
     Dosage: 150 MG, BID
     Route: 048
  23. TAMULOSIN [Concomitant]
     Active Substance: TAMSULOSIN
     Indication: URINE FLOW DECREASED
     Dosage: 0.4 MG, QD
     Route: 048
  24. AMIODARONE [Concomitant]
     Active Substance: AMIODARONE
     Indication: ARRHYTHMIA
     Dosage: 200 MG, QD
     Route: 048
     Dates: start: 20170610
  25. CEPHALEXIN. [Concomitant]
     Active Substance: CEPHALEXIN
     Indication: CELLULITIS
     Dosage: 250 MG, TID
     Route: 048
     Dates: start: 20170604, end: 20170613

REACTIONS (15)
  - Blood sodium decreased [Unknown]
  - Blood potassium decreased [Unknown]
  - Presyncope [Recovered/Resolved]
  - Blood chloride decreased [Unknown]
  - Left ventricular dysfunction [Unknown]
  - Anion gap increased [Unknown]
  - Hypokalaemia [Recovered/Resolved]
  - Syncope [Recovered/Resolved]
  - Toxicity to various agents [Unknown]
  - Atrial flutter [Not Recovered/Not Resolved]
  - Carbon dioxide decreased [Unknown]
  - Ventricular tachycardia [Recovered/Resolved]
  - Ventricular arrhythmia [Unknown]
  - Blood potassium increased [Unknown]
  - Death [Fatal]

NARRATIVE: CASE EVENT DATE: 20170611
